FAERS Safety Report 8538133-0 (Version None)
Quarter: 2012Q3

REPORT INFORMATION
  Report Type: 
  Country: None (occurrence: None)
  Receive Date: 20120725
  Receipt Date: 20120717
  Transmission Date: 20120928
  Serious: Yes (Hospitalization)
  Sender: FDA-Public Use
  Company Number: GR-ABBOTT-12P-066-0957663-00

PATIENT
  Sex: Male
  Weight: 75 kg

DRUGS (9)
  1. ZEMPLAR [Suspect]
     Indication: HYPERPARATHYROIDISM SECONDARY
     Route: 042
     Dates: start: 20120104
  2. ERYTHROPOETIN [Concomitant]
     Indication: ANAEMIA
     Route: 042
     Dates: start: 20120104
  3. IRON [Concomitant]
     Indication: ANAEMIA
     Route: 042
     Dates: start: 20120201
  4. BICALUTAMIDE [Suspect]
     Indication: PROSTATE CANCER
     Route: 048
     Dates: start: 20120502
  5. SEVELAMER [Concomitant]
     Indication: HYPERPHOSPHATAEMIA
     Route: 048
     Dates: start: 20120104
  6. TRIPTORELIN [Concomitant]
     Indication: PROSTATE CANCER
     Route: 030
     Dates: start: 20120502
  7. L-CARNITINE [Concomitant]
     Indication: MUSCULAR WEAKNESS
     Route: 042
     Dates: start: 20120104
  8. LANTUS [Concomitant]
     Indication: DIABETES MELLITUS
     Dosage: AT BEDTIME.
     Route: 058
     Dates: start: 20120104
  9. CALCIUM CARBONATE [Concomitant]
     Indication: HYPERPHOSPHATAEMIA
     Route: 048
     Dates: start: 20120704

REACTIONS (3)
  - FALL [None]
  - VERTIGO [None]
  - ARTERIOVENOUS FISTULA THROMBOSIS [None]
